FAERS Safety Report 21800990 (Version 1)
Quarter: 2022Q4

REPORT INFORMATION
  Report Type: Spontaneous
  Country: US (occurrence: None)
  Receive Date: 20221229
  Receipt Date: 20221229
  Transmission Date: 20230113
  Serious: No
  Sender: FDA-Public Use
  Company Number: None

PATIENT
  Age: 44 Year
  Sex: Female
  Weight: 69.75 kg

DRUGS (8)
  1. SUMATRIPTAN [Suspect]
     Active Substance: SUMATRIPTAN
     Indication: Migraine
     Dosage: OTHER QUANTITY : 1 TABLET(S);?FREQUENCY : AS NEEDED;?
     Route: 048
     Dates: start: 20221119, end: 20221224
  2. METOPROLOL TARTRATE [Concomitant]
     Active Substance: METOPROLOL TARTRATE
  3. PRAVASTATIN [Concomitant]
     Active Substance: PRAVASTATIN
  4. BUPROPION [Concomitant]
     Active Substance: BUPROPION
  5. Daily womens multivitamins [Concomitant]
  6. BENADRYL [Concomitant]
     Active Substance: DIPHENHYDRAMINE HYDROCHLORIDE
  7. ZYRTEC [Concomitant]
     Active Substance: CETIRIZINE HYDROCHLORIDE
  8. MELATONIN [Concomitant]
     Active Substance: MELATONIN

REACTIONS (8)
  - Headache [None]
  - Nausea [None]
  - Head discomfort [None]
  - Heart rate increased [None]
  - Paraesthesia oral [None]
  - Paraesthesia oral [None]
  - Sensation of foreign body [None]
  - Oropharyngeal discomfort [None]

NARRATIVE: CASE EVENT DATE: 20221224
